FAERS Safety Report 11703887 (Version 1)
Quarter: 2015Q4

REPORT INFORMATION
  Report Type: Spontaneous
  Country: US (occurrence: None)
  Receive Date: 20151105
  Receipt Date: 20151105
  Transmission Date: 20160304
  Serious: Yes (Other)
  Sender: FDA-Public Use
  Company Number: None

PATIENT
  Age: 23 Year
  Sex: Female
  Weight: 71.67 kg

DRUGS (3)
  1. POTASSIUM [Concomitant]
     Active Substance: POTASSIUM
  2. DEXACORTIN 20MG DEXACORTEN [Suspect]
     Active Substance: DEXAMETHASONE SODIUM PHOSPHATE
     Indication: WEIGHT INCREASED
     Route: 048
  3. IRON [Concomitant]
     Active Substance: IRON

REACTIONS (6)
  - Pruritus generalised [None]
  - Dizziness [None]
  - Feeling abnormal [None]
  - Mood swings [None]
  - Vision blurred [None]
  - Joint swelling [None]

NARRATIVE: CASE EVENT DATE: 20081103
